FAERS Safety Report 23222282 (Version 2)
Quarter: 2024Q1

REPORT INFORMATION
  Report Type: Spontaneous
  Country: FR (occurrence: FR)
  Receive Date: 20231123
  Receipt Date: 20240217
  Transmission Date: 20240410
  Serious: Yes (Other)
  Sender: FDA-Public Use
  Company Number: FR-TEVA-2023-FR-2947594

PATIENT
  Age: 68 Year
  Sex: Female

DRUGS (9)
  1. IMATINIB [Suspect]
     Active Substance: IMATINIB
     Indication: Gastrointestinal stromal tumour
     Dosage: DOSAGE TEXT: ONCE DAILY
     Route: 065
  2. IMATINIB [Suspect]
     Active Substance: IMATINIB
     Indication: Gastrointestinal stromal tumour
     Dosage: DOSAGE TEXT: ONCE DAILY
     Route: 065
     Dates: start: 202104
  3. IMATINIB [Suspect]
     Active Substance: IMATINIB
     Indication: Gastrointestinal stromal tumour
     Dosage: DOSAGE TEXT: ONCE DAILY
     Route: 065
     Dates: start: 2021
  4. IMATINIB [Suspect]
     Active Substance: IMATINIB
     Indication: Gastrointestinal stromal tumour
     Dosage: DOSAGE TEXT: ONCE DAILY
     Route: 065
     Dates: start: 202201
  5. AFATINIB [Suspect]
     Active Substance: AFATINIB
     Indication: Lung adenocarcinoma
     Route: 065
     Dates: start: 2020
  6. OSIMERTINIB [Suspect]
     Active Substance: OSIMERTINIB
     Indication: Lung adenocarcinoma
     Dosage: DOSAGE TEXT: ONCE DAILY
     Route: 065
     Dates: start: 202009
  7. OSIMERTINIB [Suspect]
     Active Substance: OSIMERTINIB
     Indication: Lung adenocarcinoma
     Dosage: DOSAGE TEXT: ONCE DAILY
     Route: 065
     Dates: start: 2021
  8. CRIZOTINIB [Interacting]
     Active Substance: CRIZOTINIB
     Indication: Lung adenocarcinoma
     Dosage: DOSAGE TEXT: ONCE DAILY
     Route: 065
     Dates: start: 2021
  9. CRIZOTINIB [Interacting]
     Active Substance: CRIZOTINIB
     Indication: Lung adenocarcinoma
     Dosage: DOSAGE TEXT: ONCE DAILY
     Route: 065
     Dates: start: 2021

REACTIONS (10)
  - Diarrhoea [Unknown]
  - Off label use [Unknown]
  - Blood creatine phosphokinase increased [Unknown]
  - Acute kidney injury [Recovering/Resolving]
  - Hepatic cytolysis [Recovering/Resolving]
  - Alanine aminotransferase increased [Recovered/Resolved]
  - Drug level increased [Recovering/Resolving]
  - Drug interaction [Recovering/Resolving]
  - Drug ineffective [Unknown]
  - Drug resistance [Unknown]

NARRATIVE: CASE EVENT DATE: 20210101
